FAERS Safety Report 7072705-8 (Version None)
Quarter: 2010Q4

REPORT INFORMATION
  Report Type: 
  Country: None (occurrence: None)
  Receive Date: 20101029
  Receipt Date: 20101019
  Transmission Date: 20110411
  Serious: Yes (Hospitalization, Other)
  Sender: FDA-Public Use
  Company Number: US-NOVOPROD-316705

PATIENT
  Age: 66 Year
  Sex: Male

DRUGS (1)
  1. NOVOLOG [Suspect]
     Indication: TYPE 2 DIABETES MELLITUS
     Dosage: 18-25 U, QD SLIDING SCALE
     Route: 058

REACTIONS (2)
  - CONVULSION [None]
  - HYPOGLYCAEMIC UNCONSCIOUSNESS [None]
